FAERS Safety Report 16278894 (Version 16)
Quarter: 2019Q3

REPORT INFORMATION
  Report Type: Report from Study
  Country: KR (occurrence: KR)
  Receive Date: 20190506
  Receipt Date: 20190923
  Transmission Date: 20191004
  Serious: Yes (Hospitalization)
  Sender: FDA-Public Use
  Company Number: KR-EISAI MEDICAL RESEARCH-EC-2019-055977

PATIENT
  Age: 57 Year
  Sex: Male
  Weight: 65 kg

DRUGS (12)
  1. LENVATINIB [Suspect]
     Active Substance: LENVATINIB
     Dosage: STARTING DOSE AT 14 MG (FLUCTUATED DOSAGE)
     Route: 048
     Dates: start: 20190509
  2. URSA TABLETS [Concomitant]
     Route: 048
     Dates: start: 20190324, end: 20190416
  3. LASIX [Concomitant]
     Active Substance: FUROSEMIDE
     Dates: start: 20190325
  4. PEMBROLIZUMAB. [Suspect]
     Active Substance: PEMBROLIZUMAB
     Route: 041
     Dates: start: 20190529
  5. SODIUM BICARBONATE. [Concomitant]
     Active Substance: SODIUM BICARBONATE
     Route: 048
     Dates: start: 20190326
  6. TANTUM [Concomitant]
     Active Substance: BENZYDAMINE HYDROCHLORIDE
     Route: 048
     Dates: start: 20190326
  7. PEMBROLIZUMAB. [Suspect]
     Active Substance: PEMBROLIZUMAB
     Indication: GASTRIC CANCER
     Route: 041
     Dates: start: 20190416, end: 20190416
  8. LENVATINIB [Suspect]
     Active Substance: LENVATINIB
     Indication: GASTRIC CANCER
     Route: 048
     Dates: start: 20190416, end: 20190425
  9. PEMBROLIZUMAB. [Suspect]
     Active Substance: PEMBROLIZUMAB
     Route: 041
     Dates: start: 20190509, end: 20190509
  10. FEROBA [Concomitant]
     Active Substance: FERROUS SULFATE\PROTEASE
     Route: 048
     Dates: start: 20190326
  11. ALDACTONE [Concomitant]
     Active Substance: SPIRONOLACTONE
     Route: 048
     Dates: start: 20190325
  12. OMAP ONE PERI [Concomitant]
     Dates: start: 20190414

REACTIONS (2)
  - Dehydration [Recovered/Resolved]
  - Hepatic function abnormal [Recovered/Resolved]

NARRATIVE: CASE EVENT DATE: 20190429
